FAERS Safety Report 4758825-9 (Version None)
Quarter: 2005Q3

REPORT INFORMATION
  Report Type: 
  Country: None (occurrence: None)
  Receive Date: 20050901
  Receipt Date: 20050311
  Transmission Date: 20060218
  Serious: Yes (Hospitalization, Disabling, Other)
  Sender: FDA-Public Use
  Company Number: US-MERCK-0503USA02748

PATIENT
  Age: 42 Year
  Sex: Male
  Weight: 91 kg

DRUGS (11)
  1. VIOXX [Suspect]
     Indication: BACK PAIN
     Route: 048
     Dates: start: 20001023, end: 20010303
  2. VIOXX [Suspect]
     Route: 048
     Dates: start: 20010824, end: 20010924
  3. VIOXX [Suspect]
     Route: 048
     Dates: start: 20020222, end: 20031119
  4. LORCET-HD [Concomitant]
     Route: 065
     Dates: start: 20001023, end: 20010322
  5. LORCET-HD [Concomitant]
     Route: 065
     Dates: start: 20011120
  6. NEURONTIN [Concomitant]
     Route: 065
  7. CYCLOBENZAPRINE HYDROCHLORIDE [Concomitant]
     Route: 065
  8. HYDROCODONE HYDROCHLORIDE [Concomitant]
     Route: 065
  9. NORTRIPTYLINE [Concomitant]
     Route: 065
     Dates: start: 20001106, end: 20001204
  10. DOXEPIN HYDROCHLORIDE [Concomitant]
     Route: 065
     Dates: start: 20021115, end: 20030224
  11. VALIUM [Concomitant]
     Route: 065
     Dates: start: 20001106

REACTIONS (15)
  - ANXIETY [None]
  - BACK DISORDER [None]
  - CEREBROVASCULAR ACCIDENT [None]
  - CHEST PAIN [None]
  - CORONARY ARTERY OCCLUSION [None]
  - DEPRESSION [None]
  - DEVICE RELATED INFECTION [None]
  - HAEMATOCHEZIA [None]
  - INFECTION [None]
  - ISCHAEMIC CARDIOMYOPATHY [None]
  - MYOCARDIAL INFARCTION [None]
  - NEOPLASM MALIGNANT [None]
  - SURGICAL PROCEDURE REPEATED [None]
  - TRANSIENT ISCHAEMIC ATTACK [None]
  - VENTRICULAR FIBRILLATION [None]
